FAERS Safety Report 5100123-8 (Version None)
Quarter: 2006Q3

REPORT INFORMATION
  Report Type: 
  Country: None (occurrence: None)
  Receive Date: 20060802
  Receipt Date: 20060426
  Transmission Date: 20061208
  Serious: Yes (Other)
  Sender: FDA-Public Use
  Company Number: US-JNJFOC-20060406184

PATIENT
  Age: 18 Year
  Sex: Female

DRUGS (1)
  1. ACETAMINOPHEN [Suspect]
     Indication: DRUG USE FOR UNKNOWN INDICATION
     Dosage: 19500 MG, 1 IN 1 TOTAL, ORAL
     Route: 048
     Dates: start: 20060426, end: 20060426

REACTIONS (2)
  - INTENTIONAL OVERDOSE [None]
  - VOMITING [None]
